FAERS Safety Report 11209127 (Version 1)
Quarter: 2015Q2

REPORT INFORMATION
  Report Type: Spontaneous
  Country: SE (occurrence: SE)
  Receive Date: 20150622
  Receipt Date: 20150622
  Transmission Date: 20150821
  Serious: Yes (Other)
  Sender: FDA-Public Use
  Company Number: PHHY2015SE071979

PATIENT
  Age: 40 Year
  Sex: Female

DRUGS (1)
  1. HALOPERIDOL. [Suspect]
     Active Substance: HALOPERIDOL
     Indication: RESTLESSNESS
     Dosage: 2.5 MG, UNK
     Route: 030

REACTIONS (6)
  - Movement disorder [Recovered/Resolved]
  - Cogwheel rigidity [Recovered/Resolved]
  - Gait disturbance [Recovered/Resolved]
  - Camptocormia [Recovered/Resolved with Sequelae]
  - Musculoskeletal stiffness [Recovered/Resolved]
  - Fatigue [Recovered/Resolved]
